FAERS Safety Report 15526994 (Version 4)
Quarter: 2019Q2

REPORT INFORMATION
  Report Type: Spontaneous
  Country: US (occurrence: US)
  Receive Date: 20181018
  Receipt Date: 20190521
  Transmission Date: 20190711
  Serious: No
  Sender: FDA-Public Use
  Company Number: US-SA-2018SA287772

PATIENT
  Age: 53 Year
  Sex: Female

DRUGS (2)
  1. APIDRA SOLOSTAR [Suspect]
     Active Substance: INSULIN GLULISINE
     Indication: TYPE 1 DIABETES MELLITUS
     Dosage: 10 U, TID
     Route: 065
     Dates: start: 20180101
  2. APIDRA SOLOSTAR [Suspect]
     Active Substance: INSULIN GLULISINE
     Dosage: 4 UNITS IN THE MORNING 3 UNITS IN THE AFTERNOON AND 4 UNITS AT NIGH
     Route: 065
     Dates: start: 20180101

REACTIONS (2)
  - Visual impairment [Unknown]
  - Blood glucose increased [Recovering/Resolving]
